FAERS Safety Report 17807842 (Version 1)
Quarter: 2020Q2

REPORT INFORMATION
  Report Type: Spontaneous
  Country: US (occurrence: US)
  Receive Date: 20200520
  Receipt Date: 20200520
  Transmission Date: 20200714
  Serious: Yes (Life-Threatening)
  Sender: FDA-Public Use
  Company Number: None

PATIENT
  Age: 26 Year
  Sex: Male
  Weight: 116.1 kg

DRUGS (2)
  1. ROGAINE [Suspect]
     Active Substance: MINOXIDIL
     Indication: ALOPECIA
     Dates: start: 20200320, end: 20200515
  2. LAMISIL [Suspect]
     Active Substance: TERBINAFINE HYDROCHLORIDE

REACTIONS (7)
  - Disturbance in attention [None]
  - Head discomfort [None]
  - Anxiety [None]
  - Fatigue [None]
  - Depression [None]
  - Cognitive disorder [None]
  - Loss of libido [None]

NARRATIVE: CASE EVENT DATE: 20200515
